FAERS Safety Report 6387684-6 (Version None)
Quarter: 2009Q3

REPORT INFORMATION
  Report Type: 
  Country: None (occurrence: None)
  Receive Date: 20090930
  Receipt Date: 20090918
  Transmission Date: 20100115
  Serious: Yes (Hospitalization)
  Sender: FDA-Public Use
  Company Number: 8052301

PATIENT
  Age: 38 Year
  Sex: Female
  Weight: 47.7 kg

DRUGS (2)
  1. CIMZIA [Suspect]
     Indication: CROHN'S DISEASE
     Dosage: 400 MG SC
     Route: 058
     Dates: start: 20090701
  2. LEXAPRO [Concomitant]

REACTIONS (3)
  - EATING DISORDER [None]
  - PAIN [None]
  - WEIGHT DECREASED [None]
